FAERS Safety Report 11387461 (Version 6)
Quarter: 2016Q4

REPORT INFORMATION
  Report Type: Report from Study
  Country: JP (occurrence: JP)
  Receive Date: 20150817
  Receipt Date: 20161214
  Transmission Date: 20170206
  Serious: Yes (Life-Threatening, Hospitalization)
  Sender: FDA-Public Use
  Company Number: JP-EISAI MEDICAL RESEARCH-EC-2015-009513

PATIENT
  Age: 52 Year
  Sex: Female

DRUGS (12)
  1. RINDERON V [Concomitant]
     Active Substance: BETAMETHASONE VALERATE
  2. LENVIMA [Suspect]
     Active Substance: LENVATINIB
     Indication: THYROID CANCER
     Route: 048
     Dates: start: 20150804, end: 20150818
  3. OXYCONTIN [Concomitant]
     Active Substance: OXYCODONE HYDROCHLORIDE
  4. THYRADIN [Concomitant]
     Active Substance: LEVOTHYROXINE
  5. AROMASIN [Concomitant]
     Active Substance: EXEMESTANE
  6. SULBACILLIN [Concomitant]
     Active Substance: AMPICILLIN SODIUM\SULBACTAM SODIUM
  7. LENVIMA [Suspect]
     Active Substance: LENVATINIB
     Route: 048
     Dates: start: 20150825, end: 20150909
  8. LOXONIN [Concomitant]
     Active Substance: LOXOPROFEN SODIUM
  9. LENVIMA [Suspect]
     Active Substance: LENVATINIB
     Route: 048
     Dates: start: 20150911
  10. OLMETEC [Concomitant]
     Active Substance: OLMESARTAN MEDOXOMIL
  11. ONEALFA [Concomitant]
     Active Substance: ALFACALCIDOL
  12. NEXIUM [Concomitant]
     Active Substance: ESOMEPRAZOLE MAGNESIUM

REACTIONS (3)
  - Arteriospasm coronary [Recovering/Resolving]
  - Malaise [Not Recovered/Not Resolved]
  - Nausea [Not Recovered/Not Resolved]

NARRATIVE: CASE EVENT DATE: 20150818
